FAERS Safety Report 24083708 (Version 2)
Quarter: 2024Q3

REPORT INFORMATION
  Report Type: Spontaneous
  Country: ES (occurrence: ES)
  Receive Date: 20240712
  Receipt Date: 20240720
  Transmission Date: 20241017
  Serious: Yes (Other)
  Sender: JOHNSON AND JOHNSON
  Company Number: ES-JNJFOC-20240724363

PATIENT
  Age: 34 Year
  Sex: Female

DRUGS (4)
  1. UPTRAVI [Suspect]
     Active Substance: SELEXIPAG
     Indication: Pulmonary arterial hypertension
     Route: 048
  2. TADALAFIL [Concomitant]
     Active Substance: TADALAFIL
  3. ADALAT [Concomitant]
     Active Substance: NIFEDIPINE
  4. SINTROM [Concomitant]
     Active Substance: ACENOCOUMAROL

REACTIONS (7)
  - Systemic lupus erythematosus [Unknown]
  - Oedema [Unknown]
  - Headache [Unknown]
  - Vomiting [Unknown]
  - Nausea [Unknown]
  - Skin discolouration [Unknown]
  - Unevaluable event [Unknown]
